FAERS Safety Report 9093721 (Version 1)
Quarter: 2013Q1

REPORT INFORMATION
  Report Type: Spontaneous
  Country: US (occurrence: None)
  Receive Date: 20130122
  Receipt Date: 20130122
  Transmission Date: 20140127
  Serious: Yes (Death)
  Sender: FDA-Public Use
  Company Number: 1553103

PATIENT
  Age: 60 Year
  Sex: Male

DRUGS (3)
  1. MORPHINE SULPHATE [Suspect]
     Dosage: NOT REPORTED
  2. ALPRAZOLAM [Suspect]
     Dosage: NOT REPORTED
  3. ETHANOL [Suspect]
     Dosage: NOT REPORTED

REACTIONS (3)
  - Drug abuse [None]
  - Poisoning [None]
  - Self-medication [None]
